FAERS Safety Report 4854286-X (Version None)
Quarter: 2005Q4

REPORT INFORMATION
  Report Type: 
  Country: None (occurrence: None)
  Receive Date: 20051213
  Receipt Date: 20051213
  Transmission Date: 20060501
  Serious: No
  Sender: FDA-Public Use
  Company Number: None

PATIENT
  Age: 56 Year

DRUGS (1)
  1. DEPO-MEDROL [Suspect]

REACTIONS (2)
  - SCAR [None]
  - SKIN DISORDER [None]
